FAERS Safety Report 4764092-2 (Version None)
Quarter: 2005Q3

REPORT INFORMATION
  Report Type: 
  Country: None (occurrence: None)
  Receive Date: 20050908
  Receipt Date: 20050729
  Transmission Date: 20060218
  Serious: Yes (Hospitalization, Disabling)
  Sender: FDA-Public Use
  Company Number: US-MERCK-0508USA00425

PATIENT
  Age: 48 Year
  Sex: Male
  Weight: 84 kg

DRUGS (2)
  1. VIOXX [Suspect]
     Indication: INTERVERTEBRAL DISC DEGENERATION
     Route: 048
     Dates: start: 20010601, end: 20040315
  2. VIOXX [Suspect]
     Indication: ARTHRITIS
     Route: 048
     Dates: start: 20010601, end: 20040315

REACTIONS (7)
  - APPENDICECTOMY [None]
  - APPENDIX DISORDER [None]
  - CARDIAC DISORDER [None]
  - CARDIOVASCULAR DISORDER [None]
  - CORONARY ARTERIAL STENT INSERTION [None]
  - MYOCARDIAL INFARCTION [None]
  - STRESS [None]
